FAERS Safety Report 6938736-0 (Version None)
Quarter: 2010Q3

REPORT INFORMATION
  Report Type: 
  Country: None (occurrence: None)
  Receive Date: 20100824
  Receipt Date: 20100816
  Transmission Date: 20110219
  Serious: Yes (Other)
  Sender: FDA-Public Use
  Company Number: PHHY2010AU44430

PATIENT
  Sex: Female

DRUGS (7)
  1. ESTALIS CONTINUOUS [Suspect]
     Indication: MENOPAUSE
     Dosage: 1 PATCH TWICE WEEKLY
     Route: 062
  2. PREDNISOLONE [Concomitant]
     Dosage: UNK
  3. LYRICA [Concomitant]
     Dosage: UNK
  4. METHOTREXATE [Concomitant]
     Dosage: UNK
  5. FOLIC ACID [Concomitant]
     Dosage: UNK
  6. NAPROSYN [Concomitant]
     Dosage: UNK
  7. THYROXIN [Concomitant]
     Dosage: UNK

REACTIONS (1)
  - MENORRHAGIA [None]
